FAERS Safety Report 5940508-0 (Version None)
Quarter: 2008Q4

REPORT INFORMATION
  Report Type: 
  Country: None (occurrence: None)
  Receive Date: 20081104
  Receipt Date: 20081031
  Transmission Date: 20090506
  Serious: Yes (Other)
  Sender: FDA-Public Use
  Company Number: TR-BRISTOL-MYERS SQUIBB COMPANY-14391551

PATIENT
  Age: 50 Year
  Sex: Female

DRUGS (2)
  1. TRIAMCINOLONE DIACETATE [Suspect]
     Dosage: 60 MG IN 6 ML TOTAL VOLUME WAS INJECTED.
     Route: 008
  2. MARCAINE [Suspect]
     Dosage: 2ML OF 0.5% BUPIVACAINE

REACTIONS (1)
  - CAUDA EQUINA SYNDROME [None]
